FAERS Safety Report 4771233-X (Version None)
Quarter: 2005Q3

REPORT INFORMATION
  Report Type: 
  Country: None (occurrence: None)
  Receive Date: 20050912
  Receipt Date: 20050622
  Transmission Date: 20060218
  Serious: No
  Sender: FDA-Public Use
  Company Number: 2005-01339

PATIENT
  Age: 51 Year
  Sex: Male
  Weight: 81.6 kg

DRUGS (3)
  1. VELCADE [Suspect]
     Indication: MULTIPLE MYELOMA
     Dosage: 1.30 MG/M2, IV BOLUS
     Route: 040
     Dates: end: 20050620
  2. AREDIA [Concomitant]
  3. ELAVIL [Concomitant]

REACTIONS (1)
  - HYPERSOMNIA [None]
